FAERS Safety Report 25251587 (Version 1)
Quarter: 2025Q2

REPORT INFORMATION
  Report Type: Spontaneous
  Country: US (occurrence: None)
  Receive Date: 20250429
  Receipt Date: 20250429
  Transmission Date: 20250716
  Serious: Yes (Hospitalization)
  Sender: FDA-CTU
  Company Number: None

PATIENT
  Age: 54 Year
  Sex: Male
  Weight: 90.45 kg

DRUGS (2)
  1. OCTAGAM IMMUNE GLOBULIN (HUMAN) [Suspect]
     Active Substance: HUMAN IMMUNOGLOBULIN G
     Indication: Chronic inflammatory demyelinating polyradiculoneuropathy
     Dates: start: 20250214
  2. OCTAGAM IMMUNE GLOBULIN (HUMAN) [Suspect]
     Active Substance: HUMAN IMMUNOGLOBULIN G
     Dates: start: 20250214

REACTIONS (10)
  - Abdominal pain [None]
  - Arthralgia [None]
  - Headache [None]
  - Nausea [None]
  - Pallor [None]
  - Vomiting [None]
  - Pyrexia [None]
  - Hypertension [None]
  - Atrioventricular block first degree [None]
  - Infusion related reaction [None]

NARRATIVE: CASE EVENT DATE: 20250214
